FAERS Safety Report 5063598-9 (Version None)
Quarter: 2006Q3

REPORT INFORMATION
  Report Type: 
  Country: None (occurrence: None)
  Receive Date: 20060727
  Receipt Date: 20060612
  Transmission Date: 20061208
  Serious: Yes (Other)
  Sender: FDA-Public Use
  Company Number: US-ROCHE-451755

PATIENT
  Age: 51 Year
  Sex: Female
  Weight: 56.7 kg

DRUGS (3)
  1. BONIVA [Suspect]
     Indication: BONE DENSITY DECREASED
     Route: 048
     Dates: start: 20060115
  2. TESTOSTERONE [Concomitant]
     Route: 061
  3. VITAMINS NOS [Concomitant]
     Route: 048

REACTIONS (4)
  - IMPAIRED HEALING [None]
  - OSTEITIS [None]
  - PAIN IN JAW [None]
  - TOOTH EXTRACTION [None]
